FAERS Safety Report 4871982-9 (Version None)
Quarter: 2005Q4

REPORT INFORMATION
  Report Type: 
  Country: None (occurrence: None)
  Receive Date: 20051230
  Receipt Date: 20051214
  Transmission Date: 20060501
  Serious: Yes (Hospitalization)
  Sender: FDA-Public Use
  Company Number: US-2005-022236

PATIENT
  Age: 44 Year
  Sex: Male
  Weight: 72 kg

DRUGS (4)
  1. BETASERON [Suspect]
     Indication: RELAPSING-REMITTING MULTIPLE SCLEROSIS
     Dosage: 8 MIU, EVERY 2D, SUBCUTANEOUS
     Route: 058
     Dates: start: 20050709
  2. NAPROXEN [Concomitant]
  3. GABAPENTIN [Concomitant]
  4. ATENOLOL [Concomitant]

REACTIONS (3)
  - INJECTION SITE ABSCESS [None]
  - INJECTION SITE HAEMORRHAGE [None]
  - MUSCLE NECROSIS [None]
